FAERS Safety Report 7045939-6 (Version None)
Quarter: 2010Q4

REPORT INFORMATION
  Report Type: 
  Country: None (occurrence: None)
  Receive Date: 20101014
  Receipt Date: 20101006
  Transmission Date: 20110411
  Serious: Yes (Death, Other)
  Sender: FDA-Public Use
  Company Number: CA-SANOFI-AVENTIS-2010SA059684

PATIENT

DRUGS (1)
  1. PLAVIX [Suspect]
     Route: 048
     Dates: start: 20060101, end: 20100101

REACTIONS (2)
  - DEATH [None]
  - IN-STENT ARTERIAL RESTENOSIS [None]
